FAERS Safety Report 6239722-9 (Version None)
Quarter: 2009Q2

REPORT INFORMATION
  Report Type: 
  Country: None (occurrence: None)
  Receive Date: 20090619
  Receipt Date: 20090610
  Transmission Date: 20091009
  Serious: Yes (Hospitalization)
  Sender: FDA-Public Use
  Company Number: 000847

PATIENT
  Sex: Male
  Weight: 95 kg

DRUGS (6)
  1. VIMPAT [Suspect]
     Indication: PARTIAL SEIZURES
     Dosage: (150 MG BID, 300 MG DAILY ORAL)
     Route: 048
     Dates: start: 20090401
  2. OMEPRAZOLE [Suspect]
     Indication: NAUSEA
  3. ERGENYL [Concomitant]
  4. LAMICTAL [Concomitant]
  5. LYRICA [Concomitant]
  6. RISPERDAL [Concomitant]

REACTIONS (6)
  - DIZZINESS [None]
  - HYPERSENSITIVITY [None]
  - NAUSEA [None]
  - PRURITUS [None]
  - REACTION TO DRUG EXCIPIENTS [None]
  - URTICARIA [None]
